FAERS Safety Report 12675817 (Version 1)
Quarter: 2016Q3

REPORT INFORMATION
  Report Type: Spontaneous
  Country: US (occurrence: None)
  Receive Date: 20160822
  Receipt Date: 20160822
  Transmission Date: 20161109
  Serious: No
  Sender: FDA-Public Use
  Company Number: None

PATIENT
  Age: 33 Year
  Sex: Female
  Weight: 48.08 kg

DRUGS (1)
  1. BUPROPION 150 MG [Suspect]
     Active Substance: BUPROPION
     Indication: DEPRESSION
     Route: 048
     Dates: start: 20151226, end: 20151230

REACTIONS (4)
  - Rash [None]
  - Pruritus [None]
  - Eye pruritus [None]
  - Hypersensitivity [None]

NARRATIVE: CASE EVENT DATE: 20151226
